FAERS Safety Report 4356873-4 (Version None)
Quarter: 2004Q2

REPORT INFORMATION
  Report Type: 
  Country: None (occurrence: None)
  Receive Date: 20040512
  Receipt Date: 20040304
  Transmission Date: 20050107
  Serious: Yes (Hospitalization, Disabling, Other)
  Sender: FDA-Public Use
  Company Number: US-MERCK-0403USA00397

PATIENT
  Age: 55 Year
  Sex: Female

DRUGS (3)
  1. [THERAPY UNSPECIFIED] [Concomitant]
     Route: 065
  2. CRIXIVAN [Suspect]
     Indication: PROPHYLAXIS
     Route: 048
     Dates: start: 20000730
  3. COMBIVIR [Suspect]
     Route: 065
     Dates: start: 20000707, end: 20000801

REACTIONS (19)
  - ANGIONEUROTIC OEDEMA [None]
  - ASTHENIA [None]
  - ATAXIA [None]
  - BLOOD DISORDER [None]
  - CYTOMEGALOVIRUS INFECTION [None]
  - EPSTEIN-BARR VIRUS INFECTION [None]
  - FAECAL INCONTINENCE [None]
  - FLATULENCE [None]
  - FULL BLOOD COUNT INCREASED [None]
  - GASTRITIS EROSIVE [None]
  - HALLUCINATION [None]
  - HYPOTHYROIDISM [None]
  - MEMORY IMPAIRMENT [None]
  - MENTAL DISORDER [None]
  - MENTAL IMPAIRMENT [None]
  - NAUSEA [None]
  - NEUROPATHY PERIPHERAL [None]
  - POST-TRAUMATIC STRESS DISORDER [None]
  - SLEEP DISORDER [None]
